FAERS Safety Report 7075255-8 (Version None)
Quarter: 2010Q4

REPORT INFORMATION
  Report Type: 
  Country: None (occurrence: None)
  Receive Date: 20101030
  Receipt Date: 20100908
  Transmission Date: 20110411
  Serious: No
  Sender: FDA-Public Use
  Company Number: US-WYE-H16686610

PATIENT
  Sex: Female
  Weight: 63.56 kg

DRUGS (8)
  1. PRISTIQ [Suspect]
     Indication: DEPRESSION
     Route: 048
     Dates: start: 20090101, end: 20100601
  2. PRISTIQ [Suspect]
     Route: 048
     Dates: start: 20100601, end: 20100601
  3. PRISTIQ [Suspect]
     Route: 048
     Dates: start: 20100601, end: 20100601
  4. PRISTIQ [Suspect]
     Route: 048
     Dates: start: 20100601, end: 20100701
  5. PRISTIQ [Suspect]
     Route: 048
     Dates: start: 20100701
  6. ESTROGEN NOS [Concomitant]
  7. FISH OIL, HYDROGENATED [Concomitant]
  8. METHYLTESTOSTERONE [Concomitant]

REACTIONS (3)
  - BLOOD CHOLESTEROL INCREASED [None]
  - DRUG WITHDRAWAL SYNDROME [None]
  - TINNITUS [None]
